FAERS Safety Report 7304551-1 (Version None)
Quarter: 2011Q1

REPORT INFORMATION
  Report Type: 
  Country: None (occurrence: None)
  Receive Date: 20110222
  Receipt Date: 20101111
  Transmission Date: 20110831
  Serious: Yes (Other)
  Sender: FDA-Public Use
  Company Number: PHHY2010AT84484

PATIENT
  Sex: Female
  Weight: 50 kg

DRUGS (1)
  1. RASILEZ [Suspect]
     Indication: HYPERTENSION
     Dosage: 300 MG, ONCE DAILY
     Dates: start: 20090801, end: 20100701

REACTIONS (3)
  - ADDUCTOR VOCAL CORD WEAKNESS [None]
  - MUSCULAR WEAKNESS [None]
  - MYALGIA [None]
